FAERS Safety Report 4788824-2 (Version None)
Quarter: 2005Q4

REPORT INFORMATION
  Report Type: 
  Country: None (occurrence: None)
  Receive Date: 20051004
  Receipt Date: 20050920
  Transmission Date: 20060501
  Serious: Yes (Hospitalization, Disabling)
  Sender: FDA-Public Use
  Company Number: PL-2005-008066

PATIENT
  Age: 57 Year
  Sex: Male
  Weight: 65 kg

DRUGS (9)
  1. FLUDARABINE PHOSPHATE [Suspect]
     Indication: CHRONIC LYMPHOCYTIC LEUKAEMIA
     Dosage: 45 MG, CYCLES, INTRAVENOUS
     Route: 042
     Dates: start: 20040924, end: 20041219
  2. CYCLOPHOSPHAMIDE [Suspect]
     Indication: CHRONIC LYMPHOCYTIC LEUKAEMIA
     Dosage: 450 MG, CYCLES, INTRAVENOUS
     Route: 042
     Dates: start: 20040924, end: 20041219
  3. KETOPROFEN [Concomitant]
  4. ACYCLOVIR [Concomitant]
  5. COTRIMOXAZOL  COPHAR [Concomitant]
  6. ETHAMSYLATE (ETAMSILAE) [Concomitant]
  7. CIMETIDINE [Concomitant]
  8. CIPROFLOXACIN [Concomitant]
  9. OMEPRAZOLE [Concomitant]

REACTIONS (3)
  - COOMBS DIRECT TEST POSITIVE [None]
  - COOMBS INDIRECT TEST POSITIVE [None]
  - EVAN'S SYNDROME [None]
